FAERS Safety Report 4788135-5 (Version None)
Quarter: 2005Q4

REPORT INFORMATION
  Report Type: 
  Country: None (occurrence: None)
  Receive Date: 20051005
  Receipt Date: 20050926
  Transmission Date: 20060501
  Serious: Yes (Life-Threatening, Hospitalization, Other)
  Sender: FDA-Public Use
  Company Number: DE-JNJFOC-20050800795

PATIENT
  Sex: Male
  Weight: 65 kg

DRUGS (14)
  1. DURAGESIC-100 [Suspect]
     Route: 062
  2. DURAGESIC-100 [Suspect]
     Indication: PAIN
     Route: 062
  3. VELCADE [Concomitant]
     Indication: MULTIPLE MYELOMA
     Route: 042
  4. NEXIUM [Concomitant]
     Route: 048
  5. MOVICOL [Concomitant]
     Route: 048
  6. MOVICOL [Concomitant]
     Route: 048
  7. MOVICOL [Concomitant]
     Route: 048
  8. MOVICOL [Concomitant]
     Route: 048
  9. KALINOR [Concomitant]
     Route: 048
  10. KELTICAN [Concomitant]
     Route: 065
  11. KELTICAN [Concomitant]
     Route: 065
  12. KELTICAN [Concomitant]
     Route: 065
  13. MARCUMAR [Concomitant]
     Dosage: 1/4 TABLET DAILY.
     Route: 048
  14. ENOXAPARIN SODIUM [Concomitant]
     Route: 058

REACTIONS (5)
  - CIRCULATORY COLLAPSE [None]
  - DEEP VEIN THROMBOSIS [None]
  - DISEASE PROGRESSION [None]
  - PULMONARY EMBOLISM [None]
  - SYNCOPE [None]
